FAERS Safety Report 21591831 (Version 1)
Quarter: 2022Q4

REPORT INFORMATION
  Report Type: Spontaneous
  Country: US (occurrence: None)
  Receive Date: 20221112
  Receipt Date: 20221112
  Transmission Date: 20230113
  Serious: Yes (Disabling, Other)
  Sender: FDA-Public Use
  Company Number: None

PATIENT
  Age: 39 Year
  Sex: Female
  Weight: 70.76 kg

DRUGS (1)
  1. REXULTI [Suspect]
     Active Substance: BREXPIPRAZOLE
     Indication: Depression
     Dosage: FREQUENCY : DAILY;?
     Route: 048

REACTIONS (5)
  - Pharyngeal swelling [None]
  - Anxiety [None]
  - Dyspnoea [None]
  - Dysphagia [None]
  - Anxiety [None]

NARRATIVE: CASE EVENT DATE: 20201015
